FAERS Safety Report 10066612 (Version 1)
Quarter: 2014Q2

REPORT INFORMATION
  Report Type: Report from Study
  Country: US (occurrence: US)
  Receive Date: 20140408
  Receipt Date: 20140408
  Transmission Date: 20141212
  Serious: Yes (Hospitalization)
  Sender: FDA-Public Use
  Company Number: US-EXELIXIS-XL18414004141

PATIENT
  Age: 84 Year
  Sex: Female

DRUGS (1)
  1. XL184 [Suspect]
     Indication: NON-SMALL CELL LUNG CANCER
     Dosage: 60 MG, QD
     Route: 048
     Dates: start: 20131220, end: 20131230

REACTIONS (2)
  - Cognitive disorder [Recovering/Resolving]
  - Aphasia [Recovered/Resolved]
